FAERS Safety Report 8475149 (Version 11)
Quarter: 2013Q4

REPORT INFORMATION
  Report Type: Spontaneous
  Country: US (occurrence: US)
  Receive Date: 20120324
  Receipt Date: 20131120
  Transmission Date: 20140711
  Serious: Yes (Disabling, Other)
  Sender: FDA-Public Use
  Company Number: US-ASTRAZENECA-2012SE17036

PATIENT
  Age: 59 Year
  Sex: Female
  Weight: 61.2 kg

DRUGS (36)
  1. SEROQUEL [Suspect]
     Indication: AGITATION
     Route: 048
     Dates: start: 2012
  2. SEROQUEL [Suspect]
     Indication: PSYCHOMOTOR HYPERACTIVITY
     Route: 048
     Dates: start: 2012
  3. SEROQUEL [Suspect]
     Indication: ANXIETY
     Route: 048
     Dates: start: 2012
  4. SEROQUEL [Suspect]
     Indication: LOGORRHOEA
     Route: 048
     Dates: start: 2012
  5. SEROQUEL [Suspect]
     Indication: BIPOLAR I DISORDER
     Route: 048
     Dates: start: 2012
  6. SEROQUEL [Suspect]
     Indication: BIPOLAR DISORDER
     Route: 048
     Dates: start: 2012
  7. SEROQUEL [Suspect]
     Indication: AGITATION
     Dosage: CUTS PILLS IN TO HALF
     Route: 048
  8. SEROQUEL [Suspect]
     Indication: PSYCHOMOTOR HYPERACTIVITY
     Dosage: CUTS PILLS IN TO HALF
     Route: 048
  9. SEROQUEL [Suspect]
     Indication: ANXIETY
     Dosage: CUTS PILLS IN TO HALF
     Route: 048
  10. SEROQUEL [Suspect]
     Indication: LOGORRHOEA
     Dosage: CUTS PILLS IN TO HALF
     Route: 048
  11. SEROQUEL [Suspect]
     Indication: BIPOLAR I DISORDER
     Dosage: CUTS PILLS IN TO HALF
     Route: 048
  12. SEROQUEL [Suspect]
     Indication: BIPOLAR DISORDER
     Dosage: CUTS PILLS IN TO HALF
     Route: 048
  13. SEROQUEL [Suspect]
     Indication: AGITATION
     Route: 048
  14. SEROQUEL [Suspect]
     Indication: PSYCHOMOTOR HYPERACTIVITY
     Route: 048
  15. SEROQUEL [Suspect]
     Indication: ANXIETY
     Route: 048
  16. SEROQUEL [Suspect]
     Indication: LOGORRHOEA
     Route: 048
  17. SEROQUEL [Suspect]
     Indication: BIPOLAR I DISORDER
     Route: 048
  18. SEROQUEL [Suspect]
     Indication: BIPOLAR DISORDER
     Route: 048
  19. SEROQUEL [Suspect]
     Indication: AGITATION
     Route: 048
  20. SEROQUEL [Suspect]
     Indication: PSYCHOMOTOR HYPERACTIVITY
     Route: 048
  21. SEROQUEL [Suspect]
     Indication: ANXIETY
     Route: 048
  22. SEROQUEL [Suspect]
     Indication: LOGORRHOEA
     Route: 048
  23. SEROQUEL [Suspect]
     Indication: BIPOLAR I DISORDER
     Route: 048
  24. SEROQUEL [Suspect]
     Indication: BIPOLAR DISORDER
     Route: 048
  25. SEROQUEL [Suspect]
     Indication: AGITATION
     Dosage: GENERIC, 200 MG DAILY
     Route: 048
     Dates: start: 20130813, end: 201308
  26. SEROQUEL [Suspect]
     Indication: PSYCHOMOTOR HYPERACTIVITY
     Dosage: GENERIC, 200 MG DAILY
     Route: 048
     Dates: start: 20130813, end: 201308
  27. SEROQUEL [Suspect]
     Indication: ANXIETY
     Dosage: GENERIC, 200 MG DAILY
     Route: 048
     Dates: start: 20130813, end: 201308
  28. SEROQUEL [Suspect]
     Indication: LOGORRHOEA
     Dosage: GENERIC, 200 MG DAILY
     Route: 048
     Dates: start: 20130813, end: 201308
  29. SEROQUEL [Suspect]
     Indication: BIPOLAR I DISORDER
     Dosage: GENERIC, 200 MG DAILY
     Route: 048
     Dates: start: 20130813, end: 201308
  30. SEROQUEL [Suspect]
     Indication: BIPOLAR DISORDER
     Dosage: GENERIC, 200 MG DAILY
     Route: 048
     Dates: start: 20130813, end: 201308
  31. LEVOTHYROXINE [Concomitant]
     Indication: THYROID DISORDER
  32. NORCO [Concomitant]
     Indication: BACK PAIN
     Dosage: TID PRN
     Route: 048
  33. BACTRIM [Concomitant]
     Indication: LYME DISEASE
     Dosage: TID
     Route: 048
  34. FLAGYL [Concomitant]
     Indication: LYME DISEASE
     Dosage: TID
     Route: 048
  35. VITAMIN B [Concomitant]
     Indication: SUPPLEMENTATION THERAPY
  36. IRON [Concomitant]
     Indication: SUPPLEMENTATION THERAPY

REACTIONS (49)
  - Haemorrhage [Unknown]
  - Peripheral paralysis [Not Recovered/Not Resolved]
  - Autoimmune neuropathy [Not Recovered/Not Resolved]
  - Peroneal nerve palsy [Not Recovered/Not Resolved]
  - Neuropathy peripheral [Not Recovered/Not Resolved]
  - Fall [Unknown]
  - Condition aggravated [Unknown]
  - Chronic inflammatory demyelinating polyradiculoneuropathy [Not Recovered/Not Resolved]
  - Thyroid disorder [Unknown]
  - Therapeutic response unexpected [Not Recovered/Not Resolved]
  - Blood count abnormal [Unknown]
  - Autoimmune thyroiditis [Unknown]
  - Somatic delusion [Unknown]
  - Arthropathy [Unknown]
  - Stress [Unknown]
  - Pain [Unknown]
  - Back disorder [Unknown]
  - Lyme disease [Unknown]
  - Vitamin D decreased [Unknown]
  - Hypometabolism [Unknown]
  - Influenza [Unknown]
  - Malaise [Unknown]
  - Anxiety [Not Recovered/Not Resolved]
  - Thinking abnormal [Unknown]
  - Visual acuity reduced [Unknown]
  - Withdrawal syndrome [Unknown]
  - Logorrhoea [Not Recovered/Not Resolved]
  - Peripheral coldness [Not Recovered/Not Resolved]
  - Confusional state [Not Recovered/Not Resolved]
  - Crying [Not Recovered/Not Resolved]
  - Depression [Not Recovered/Not Resolved]
  - Hypoaesthesia [Not Recovered/Not Resolved]
  - Muscle atrophy [Not Recovered/Not Resolved]
  - Incontinence [Not Recovered/Not Resolved]
  - Vitreous floaters [Not Recovered/Not Resolved]
  - Eye disorder [Not Recovered/Not Resolved]
  - Grip strength decreased [Not Recovered/Not Resolved]
  - Neuralgia [Not Recovered/Not Resolved]
  - Compulsions [Not Recovered/Not Resolved]
  - Activities of daily living impaired [Not Recovered/Not Resolved]
  - Skin discolouration [Not Recovered/Not Resolved]
  - Depressed mood [Not Recovered/Not Resolved]
  - Sensory disturbance [Not Recovered/Not Resolved]
  - Asthenia [Not Recovered/Not Resolved]
  - Weight increased [Unknown]
  - Somnolence [Unknown]
  - Drug ineffective [Unknown]
  - Drug dose omission [Unknown]
  - Intentional drug misuse [Unknown]
